FAERS Safety Report 5883304-5 (Version None)
Quarter: 2008Q3

REPORT INFORMATION
  Report Type: 
  Country: None (occurrence: None)
  Receive Date: 20080910
  Receipt Date: 20080910
  Transmission Date: 20090109
  Serious: Yes (Other)
  Sender: FDA-Public Use
  Company Number: None

PATIENT
  Age: 47 Year
  Sex: Male
  Weight: 86.1834 kg

DRUGS (1)
  1. CIPRO [Suspect]
     Indication: PROSTATITIS
     Dosage: 500MG  TWICE A DAY PO
     Route: 048
     Dates: start: 20080710, end: 20080815

REACTIONS (5)
  - BACK PAIN [None]
  - DEPRESSION [None]
  - DIZZINESS [None]
  - PARAESTHESIA [None]
  - TENDONITIS [None]
